FAERS Safety Report 4906396-6 (Version None)
Quarter: 2006Q1

REPORT INFORMATION
  Report Type: 
  Country: None (occurrence: None)
  Receive Date: 20060206
  Receipt Date: 20060127
  Transmission Date: 20060701
  Serious: Yes (Death)
  Sender: FDA-Public Use
  Company Number: 200510704BFR

PATIENT
  Age: 97 Year
  Sex: Male

DRUGS (3)
  1. CIPROFLOXACIN [Suspect]
     Dosage: 400 MG, TOTAL DAILY, INTRAVENOUS
     Route: 042
     Dates: start: 20050605, end: 20050614
  2. AUGMENTIN '125' [Suspect]
     Dosage: 3 G, TOTAL DAILY, INTRAVENOUS
     Route: 042
     Dates: start: 20050605, end: 20050614
  3. FLUCONAZOLE [Suspect]
     Indication: ORAL FUNGAL INFECTION
     Dosage: 100 MG, TOTAL DAILY, INTRAVENOUS
     Route: 042
     Dates: start: 20050609, end: 20050614

REACTIONS (1)
  - HAEMOLYTIC ANAEMIA [None]
